FAERS Safety Report 9177843 (Version 1)
Quarter: 2013Q1

REPORT INFORMATION
  Report Type: Report from Study
  Country: GB (occurrence: GB)
  Receive Date: 20130321
  Receipt Date: 20130321
  Transmission Date: 20140127
  Serious: Yes (Hospitalization, Other)
  Sender: FDA-Public Use
  Company Number: GB-ASTRAZENECA-2013SE16652

PATIENT
  Age: 28379 Day
  Sex: Female
  Weight: 62.2 kg

DRUGS (2)
  1. VANDETANIB [Suspect]
     Indication: LUNG NEOPLASM MALIGNANT
     Route: 048
  2. AZD6244 [Suspect]
     Indication: LUNG NEOPLASM MALIGNANT
     Route: 048
     Dates: start: 20121210

REACTIONS (1)
  - Presyncope [Recovered/Resolved]
